FAERS Safety Report 6783945-7 (Version None)
Quarter: 2010Q2

REPORT INFORMATION
  Report Type: 
  Country: None (occurrence: None)
  Receive Date: 20100622
  Receipt Date: 20100609
  Transmission Date: 20101027
  Serious: Yes (Other)
  Sender: FDA-Public Use
  Company Number: US-RB-011720-10

PATIENT
  Age: 34 Year
  Sex: Female

DRUGS (1)
  1. MUCINEX DM [Suspect]
     Indication: RESPIRATORY TRACT CONGESTION
     Dosage: CHEWED 1/4 OF TABLET
     Route: 048
     Dates: start: 20100602

REACTIONS (10)
  - ANXIETY [None]
  - CONFUSIONAL STATE [None]
  - DISORIENTATION [None]
  - DIZZINESS [None]
  - DYSPNOEA [None]
  - LARYNGEAL INFLAMMATION [None]
  - OROPHARYNGEAL PAIN [None]
  - PARAESTHESIA [None]
  - THROAT IRRITATION [None]
  - WRONG TECHNIQUE IN DRUG USAGE PROCESS [None]
